FAERS Safety Report 16207567 (Version 2)
Quarter: 2020Q3

REPORT INFORMATION
  Report Type: Spontaneous
  Country: US (occurrence: US)
  Receive Date: 20190417
  Receipt Date: 20200720
  Transmission Date: 20201102
  Serious: No
  Sender: FDA-Public Use
  Company Number: US-PFIZER INC-2019164231

PATIENT
  Age: 60 Year
  Sex: Female

DRUGS (1)
  1. LYRICA [Suspect]
     Active Substance: PREGABALIN
     Dosage: 300 MG, 2X/DAY

REACTIONS (1)
  - Visual impairment [Unknown]
